FAERS Safety Report 8292233-1 (Version None)
Quarter: 2012Q2

REPORT INFORMATION
  Report Type: 
  Country: None (occurrence: None)
  Receive Date: 20120417
  Receipt Date: 20120409
  Transmission Date: 20120825
  Serious: Yes (Other)
  Sender: FDA-Public Use
  Company Number: BR-MEDIMMUNE-MEDI-0015438

PATIENT
  Sex: Female
  Weight: 10.7 kg

DRUGS (2)
  1. SYNAGIS [Suspect]
     Dates: start: 20110616, end: 20110616
  2. SYNAGIS [Suspect]
     Indication: BRONCHIOLITIS
     Dates: start: 20110714, end: 20110810

REACTIONS (3)
  - RESTLESSNESS [None]
  - INFANTILE SPASMS [None]
  - BRONCHIOLITIS [None]
